FAERS Safety Report 8960408 (Version 1)
Quarter: 2012Q4

REPORT INFORMATION
  Report Type: 
  Country: US (occurrence: US)
  Receive Date: 20121211
  Receipt Date: 20121211
  Transmission Date: 20130627
  Serious: Yes (Other)
  Sender: FDA-Public Use
  Company Number: CHPA2012US024641

PATIENT
  Age: 54 Year
  Sex: Male

DRUGS (9)
  1. THERAFLU NIGHTTIME SEVERE COLD [Suspect]
     Indication: NASOPHARYNGITIS
     Dosage: 1 packet as needed
     Route: 048
     Dates: start: 1997
  2. ISOSORBIDE [Concomitant]
     Indication: CORONARY ARTERY DISEASE
  3. CRESTOR [Concomitant]
     Indication: BLOOD CHOLESTEROL INCREASED
  4. PLAVIX [Concomitant]
     Indication: CORONARY ARTERY DISEASE
  5. ASPIRIN [Concomitant]
     Indication: CORONARY ARTERY DISEASE
     Dosage: 325 mg, Unk
     Route: 048
  6. METOPROLOL TARTRATE [Concomitant]
     Indication: CORONARY ARTERY DISEASE
     Dosage: 50 mg, Unk
  7. LOSARTAN [Concomitant]
     Indication: CORONARY ARTERY DISEASE
  8. CALCIUM [Concomitant]
  9. VITAMIN D3 [Concomitant]
     Dosage: 1000 IU, Unk

REACTIONS (1)
  - Diabetes mellitus [Not Recovered/Not Resolved]
